FAERS Safety Report 22318342 (Version 3)
Quarter: 2023Q2

REPORT INFORMATION
  Report Type: Spontaneous
  Country: GB (occurrence: GB)
  Receive Date: 20230515
  Receipt Date: 20230605
  Transmission Date: 20230722
  Serious: Yes (Hospitalization)
  Sender: FDA-Public Use
  Company Number: GB-ALNYLAM PHARMACEUTICALS, INC.-ALN-2023-002104

PATIENT

DRUGS (2)
  1. GIVLAARI [Suspect]
     Active Substance: GIVOSIRAN SODIUM
     Indication: Product used for unknown indication
     Dosage: 2.5 MILLIGRAM/KILOGRAM, MONTHLY
     Route: 058
     Dates: start: 202204
  2. GIVLAARI [Suspect]
     Active Substance: GIVOSIRAN SODIUM
     Dosage: 2.5 MILLIGRAM/KILOGRAM, MONTHLY
     Route: 058
     Dates: start: 20230419

REACTIONS (4)
  - Pancreatitis acute [Recovered/Resolved]
  - Suicide attempt [Unknown]
  - Porphyria acute [Recovered/Resolved]
  - Infection [Recovered/Resolved]

NARRATIVE: CASE EVENT DATE: 20230501
